FAERS Safety Report 4693361-X (Version None)
Quarter: 2005Q2

REPORT INFORMATION
  Report Type: 
  Country: None (occurrence: None)
  Receive Date: 20050617
  Receipt Date: 20050314
  Transmission Date: 20051028
  Serious: Yes (Other)
  Sender: FDA-Public Use
  Company Number: US-MERCK-0503USA02936

PATIENT
  Sex: Female
  Weight: 71 kg

DRUGS (3)
  1. VIOXX [Suspect]
     Indication: ARTHRITIS
     Route: 048
     Dates: start: 20010115, end: 20030301
  2. VIOXX [Suspect]
     Route: 048
     Dates: start: 20030701, end: 20040901
  3. ASPIRIN [Concomitant]
     Route: 065

REACTIONS (4)
  - ANXIETY [None]
  - CEREBROVASCULAR ACCIDENT [None]
  - EMOTIONAL DISTRESS [None]
  - PAIN [None]
